FAERS Safety Report 23391425 (Version 1)
Quarter: 2024Q1

REPORT INFORMATION
  Report Type: Spontaneous
  Country: CZ (occurrence: CZ)
  Receive Date: 20240111
  Receipt Date: 20240111
  Transmission Date: 20240410
  Serious: Yes (Other)
  Sender: FDA-Public Use
  Company Number: None

PATIENT
  Age: 45 Year
  Sex: Male

DRUGS (3)
  1. LETERMOVIR [Suspect]
     Active Substance: LETERMOVIR
     Indication: Antiviral prophylaxis
     Dosage: UNK
     Route: 048
     Dates: start: 20230511, end: 20230804
  2. MYCOPHENOLATE MOFETIL [Suspect]
     Active Substance: MYCOPHENOLATE MOFETIL
     Indication: Prophylaxis
     Dosage: UNK
     Route: 065
     Dates: end: 20230625
  3. TACROLIMUS [Concomitant]
     Active Substance: TACROLIMUS
     Indication: Prophylaxis
     Route: 065

REACTIONS (5)
  - Immunodeficiency [Recovered/Resolved]
  - Bacterial sepsis [Recovered/Resolved]
  - Engraftment syndrome [Recovered/Resolved]
  - Gastrointestinal toxicity [Recovered/Resolved]
  - Nutritional condition abnormal [Recovered/Resolved]

NARRATIVE: CASE EVENT DATE: 20230101
